FAERS Safety Report 23748983 (Version 1)
Quarter: 2024Q2

REPORT INFORMATION
  Report Type: Spontaneous
  Country: CN (occurrence: CN)
  Receive Date: 20240416
  Receipt Date: 20240416
  Transmission Date: 20240716
  Serious: Yes (Other)
  Sender: FDA-Public Use
  Company Number: CN-ELI_LILLY_AND_COMPANY-CN202404008906

PATIENT
  Age: 39 Year
  Sex: Female
  Weight: 52.2 kg

DRUGS (8)
  1. ABEMACICLIB [Suspect]
     Active Substance: ABEMACICLIB
     Indication: Invasive ductal breast carcinoma
     Dosage: 150 MG, BID
     Route: 048
     Dates: start: 20240205, end: 20240403
  2. ABEMACICLIB [Suspect]
     Active Substance: ABEMACICLIB
     Indication: Neoplasm malignant
  3. ABEMACICLIB [Suspect]
     Active Substance: ABEMACICLIB
     Indication: Breast cancer metastatic
  4. ABEMACICLIB [Suspect]
     Active Substance: ABEMACICLIB
     Indication: Skin mass
  5. ABEMACICLIB [Suspect]
     Active Substance: ABEMACICLIB
     Indication: Thalassaemia
  6. ABEMACICLIB [Suspect]
     Active Substance: ABEMACICLIB
     Indication: Pulmonary mass
  7. ABEMACICLIB [Suspect]
     Active Substance: ABEMACICLIB
     Indication: Renal cyst
  8. ABEMACICLIB [Suspect]
     Active Substance: ABEMACICLIB
     Indication: Hepatic steatosis

REACTIONS (1)
  - Anaemia [Unknown]

NARRATIVE: CASE EVENT DATE: 20240403
